FAERS Safety Report 4433846-4 (Version None)
Quarter: 2004Q3

REPORT INFORMATION
  Report Type: 
  Country: None (occurrence: None)
  Receive Date: 20040825
  Receipt Date: 20040825
  Transmission Date: 20050211
  Serious: Yes (Hospitalization)
  Sender: FDA-Public Use
  Company Number: None

PATIENT
  Age: 52 Year
  Sex: Female
  Weight: 81.6475 kg

DRUGS (2)
  1. IRINOTECAN [Suspect]
     Indication: OVARIAN CANCER
     Dosage: 100 MG/M2 1 DOSE IV
     Route: 042
     Dates: start: 20040805, end: 20040805
  2. CAPECITABINE [Suspect]
     Indication: OVARIAN CANCER
     Dosage: 2000 MG/M2 9 DOSES ORAL
     Route: 048
     Dates: start: 20040806, end: 20040810

REACTIONS (2)
  - CHEST PAIN [None]
  - NAUSEA [None]
